FAERS Safety Report 16139968 (Version 1)
Quarter: 2019Q1

REPORT INFORMATION
  Report Type: Spontaneous
  Country: US (occurrence: US)
  Receive Date: 20190331
  Receipt Date: 20190331
  Transmission Date: 20190418
  Serious: Yes (Hospitalization, Other)
  Sender: FDA-Public Use
  Company Number: US-AMGEN-USASP2019048075

PATIENT
  Sex: Female

DRUGS (1)
  1. PROLIA [Suspect]
     Active Substance: DENOSUMAB
     Indication: PRODUCT USED FOR UNKNOWN INDICATION
     Dosage: UNK
     Route: 065

REACTIONS (7)
  - Cystitis [Unknown]
  - Pericardial effusion [Unknown]
  - Feeling abnormal [Unknown]
  - Ulcer haemorrhage [Unknown]
  - Pneumonia [Unknown]
  - Hospitalisation [Unknown]
  - Blood sodium decreased [Unknown]
